FAERS Safety Report 21254180 (Version 1)
Quarter: 2022Q3

REPORT INFORMATION
  Report Type: Report from Study
  Country: US (occurrence: US)
  Receive Date: 20220825
  Receipt Date: 20220825
  Transmission Date: 20221027
  Serious: Yes (Hospitalization)
  Sender: FDA-Public Use
  Company Number: US-PFIZER INC-PV202200049269

PATIENT
  Age: 34 Year
  Sex: Male
  Weight: 88.9 kg

DRUGS (24)
  1. INOTUZUMAB OZOGAMICIN [Suspect]
     Active Substance: INOTUZUMAB OZOGAMICIN
     Dosage: 0.6 MG/M2 ON DAY 8; 0.3 MG/M2 ON DAY 15 (FREQUENCY: DAY 8, 15)
     Route: 042
     Dates: start: 20220819
  2. DOXORUBICIN HYDROCHLORIDE [Suspect]
     Active Substance: DOXORUBICIN HYDROCHLORIDE
     Indication: B-cell type acute leukaemia
     Dosage: 10 MG/M2, CYCLIC (10 MG/M2/DAY CIV DAYS 1-4 Q28 DAYS)
     Route: 042
     Dates: start: 20220811, end: 20220814
  3. VINCRISTINE SULFATE [Suspect]
     Active Substance: VINCRISTINE SULFATE
     Indication: B-cell type acute leukaemia
     Dosage: 0.4 MG/M2, CYCLIC (0.4 MG/M2/DAY CIV DAYS 1-4 Q28 DAYS)
     Route: 042
     Dates: start: 20220811, end: 20220814
  4. ETOPOSIDE [Suspect]
     Active Substance: ETOPOSIDE
     Indication: B-cell type acute leukaemia
     Dosage: 50 MG/M2, CYCLIC (50 MG/M2/DAY CIV DAYS 1-4 Q28 DAYS)
     Route: 042
     Dates: start: 20220811, end: 20220814
  5. CYCLOPHOSPHAMIDE [Suspect]
     Active Substance: CYCLOPHOSPHAMIDE
     Indication: B-cell type acute leukaemia
     Dosage: 750 MG/M2, CYCLIC (750 MG/M2 IV DAY 5 Q28 DAYS)
     Route: 042
     Dates: start: 20220811, end: 20220814
  6. ACYCLOVIR [Concomitant]
     Active Substance: ACYCLOVIR
     Dosage: 1 TABLET (800 MG) 2 TIMES A DAY
     Route: 048
  7. FLUCONAZOLE [Concomitant]
     Active Substance: FLUCONAZOLE
     Dosage: 200 MG, DAILY (TAKE 1 TABLET (200 MG) BY MOUTH DAILY. BEGIN TAKING AS DIRECTED BY OUTPATIENT TEAM WH
     Route: 048
  8. INSULIN GLARGINE [Concomitant]
     Active Substance: INSULIN GLARGINE
     Dosage: 16 IU, DAILY (INJECT 16 UNITS UNDER THE SKIN AT BEDTIME)
  9. INSULIN LISPRO [Concomitant]
     Active Substance: INSULIN LISPRO
     Dosage: INJECT 12 UNITS UNDER THE SKIN 3 TIMES A DAY BEFORE MEALS AND PLUS 0 TO 8 UNITS 4 TIMES PER DAY PER
  10. LEVOFLOXACIN [Concomitant]
     Active Substance: LEVOFLOXACIN
     Dosage: 750 MG, 1X/DAY (TAKE 1 TABLET (750 MG) BY MOUTH 1 TIME DAILY. BEGIN TAKING AS DIRECTED BY OUTPATIENT
     Route: 048
  11. LIDOCAINE\PRILOCAINE [Concomitant]
     Active Substance: LIDOCAINE\PRILOCAINE
     Indication: Pain
     Dosage: AS NEEDED (CREAM APPLY TO PORT SITE PRIOR TO PORT ACCESS AS NEEDED)
  12. METFORMIN HYDROCHLORIDE [Concomitant]
     Active Substance: METFORMIN HYDROCHLORIDE
     Dosage: 500 MG, 2X/DAY (TAKE 1 TABLET (500 MG) BY MOUTH 2 TIMES A DAY WITH MEALS. TAKE WITH A MEAL)
     Route: 048
  13. NARCAN [Concomitant]
     Active Substance: NALOXONE HYDROCHLORIDE
     Dosage: 1 DF (USE 1 SPRAY IN ONE NOSTRIL FOR SUSPECTED OPIOID OVERDOSE, IF UNRESPONSIVE IN 2 TO 3 MINUTES, R
     Route: 045
  14. ONDANSETRON [Concomitant]
     Active Substance: ONDANSETRON
     Indication: Nausea
     Dosage: 8 MG, AS NEEDED (TAKE 1 TABLET (8 MG) BY MOUTH EVERY 8 HOURS AS NEEDED)
     Route: 048
  15. ONDANSETRON [Concomitant]
     Active Substance: ONDANSETRON
     Indication: Vomiting
  16. OXYCODONE [Concomitant]
     Active Substance: OXYCODONE
     Indication: Pain
     Dosage: 5 MG, AS NEEDED (TAKE 1 TABLET (5 MG) BY MOUTH EVERY 4 HOURS AS NEEDED)
     Route: 048
  17. POLYETHYLENE GLYCOL 3350 [Concomitant]
     Active Substance: POLYETHYLENE GLYCOL 3350
     Indication: Constipation
     Dosage: 17 GM/SCOOP ORAL POWDER FILL CAP WITH POWDER TO THE 17 GRAM MARK AND DISSOLVE IN 4-8 OUNCES OF WATER
  18. PROCHLORPERAZINE [Concomitant]
     Active Substance: PROCHLORPERAZINE
     Indication: Nausea
     Dosage: 10 MG, AS NEEDED (TAKE 1 TABLET (10 MG) BY MOUTH EVERY 6 HOURS AS NEEDED)
     Route: 048
  19. PROCHLORPERAZINE [Concomitant]
     Active Substance: PROCHLORPERAZINE
     Indication: Vomiting
  20. ROSUVASTATIN [Concomitant]
     Active Substance: ROSUVASTATIN
     Dosage: 20 MG, 1X/DAY (TAKE 1 TABLET BY MOUTH ONCE DAILY)
     Route: 048
  21. SENNA LEAF [Concomitant]
     Active Substance: SENNA LEAF
     Dosage: 17.2 MG, DAILY (TAKE 2 TABLETS (17.2 MG) BY MOUTH 1 TIME DAILY AT BEDTIME)
     Route: 048
  22. SULFAMETHOXAZOLE\TRIMETHOPRIM [Concomitant]
     Active Substance: SULFAMETHOXAZOLE\TRIMETHOPRIM
     Dosage: TAKE 1 TABLET BY MOUTH 2 TIMES A DAY ON MONDAY AND TUESDAY
     Route: 048
  23. URSODIOL [Concomitant]
     Active Substance: URSODIOL
     Dosage: TAKE 2 TABLETS (500 MG) BY MOUTH 2 TIMES A DAY WITH MEALS)
     Route: 048
  24. CHOLECALCIFEROL [Concomitant]
     Active Substance: CHOLECALCIFEROL
     Dosage: 25 MCG (1000 UT) CAPSULE-TAKE 2000 LNT^I UNITS BY MOUTH EVERY MORNING
     Route: 048

REACTIONS (1)
  - Febrile neutropenia [Not Recovered/Not Resolved]

NARRATIVE: CASE EVENT DATE: 20220822
